FAERS Safety Report 18461743 (Version 1)
Quarter: 2020Q4

REPORT INFORMATION
  Report Type: Spontaneous
  Country: JP (occurrence: JP)
  Receive Date: 20201104
  Receipt Date: 20201104
  Transmission Date: 20210114
  Serious: Yes (Other)
  Sender: FDA-Public Use
  Company Number: JP-MYLANLABS-2020M1075949

PATIENT
  Age: 36 Year
  Sex: Female

DRUGS (3)
  1. MESALAZINE TABLETS 400MG [PFIZER] [Suspect]
     Active Substance: MESALAMINE
     Indication: COLITIS ULCERATIVE
     Dosage: 800 MILLIGRAM, TID
     Route: 048
     Dates: start: 20190603
  2. MESALAZINE [Suspect]
     Active Substance: MESALAMINE
     Indication: COLITIS ULCERATIVE
     Dosage: 2 DOSAGE FORM, TID
     Route: 048
     Dates: start: 201810
  3. NERIPROCT [Suspect]
     Active Substance: DIFLUCORTOLONE VALERATE\LIDOCAINE
     Indication: PAIN
     Dosage: UNK
     Route: 054
     Dates: start: 20191217

REACTIONS (4)
  - Product residue present [Unknown]
  - Treatment failure [Not Recovered/Not Resolved]
  - Inappropriate schedule of product administration [Unknown]
  - Abdominal pain [Unknown]

NARRATIVE: CASE EVENT DATE: 20200825
